FAERS Safety Report 24465372 (Version 1)
Quarter: 2024Q4

REPORT INFORMATION
  Report Type: Report from Study
  Country: US (occurrence: US)
  Receive Date: 20241018
  Receipt Date: 20241018
  Transmission Date: 20250115
  Serious: No
  Sender: ROCHE
  Company Number: US-ROCHE-3533957

PATIENT
  Age: 24 Year
  Sex: Female

DRUGS (7)
  1. XOLAIR [Suspect]
     Active Substance: OMALIZUMAB
     Indication: Urticaria
     Route: 058
     Dates: start: 2023
  2. XOLAIR [Suspect]
     Active Substance: OMALIZUMAB
     Indication: Idiopathic urticaria
  3. HYDROXYZINE [Concomitant]
     Active Substance: HYDROXYZINE HYDROCHLORIDE
  4. PEPCID [Concomitant]
     Active Substance: FAMOTIDINE
  5. DAPSONE [Concomitant]
     Active Substance: DAPSONE
  6. CYCLOSPORINE [Concomitant]
     Active Substance: CYCLOSPORINE
  7. DOXEPIN [Concomitant]
     Active Substance: DOXEPIN

REACTIONS (1)
  - Urticaria [Not Recovered/Not Resolved]
